FAERS Safety Report 20357674 (Version 1)
Quarter: 2022Q1

REPORT INFORMATION
  Report Type: Spontaneous
  Country: ES (occurrence: ES)
  Receive Date: 20220120
  Receipt Date: 20220120
  Transmission Date: 20220424
  Serious: Yes (Other)
  Sender: FDA-Public Use
  Company Number: ES-ROCHE-2991049

PATIENT
  Age: 66 Year
  Sex: Male
  Weight: 57 kg

DRUGS (8)
  1. RIVOTRIL [Suspect]
     Active Substance: CLONAZEPAM
     Indication: Product used for unknown indication
     Dosage: 0.5 MG 1 PILL IN THE MORNING
     Route: 065
  2. RIVOTRIL [Suspect]
     Active Substance: CLONAZEPAM
     Dosage: 2MG 1/2 PILL AT NIGHT
     Route: 065
  3. PREDNISONE [Concomitant]
     Active Substance: PREDNISONE
     Route: 065
  4. ASPIRIN [Concomitant]
     Active Substance: ASPIRIN
     Route: 065
  5. ABSTRAL [Concomitant]
     Active Substance: FENTANYL CITRATE
     Route: 065
  6. FENTANYL [Concomitant]
     Active Substance: FENTANYL
     Route: 065
  7. MORPHINE [Concomitant]
     Active Substance: MORPHINE
     Route: 065
  8. MIRTAZAPINE [Concomitant]
     Active Substance: MIRTAZAPINE

REACTIONS (5)
  - Lung neoplasm malignant [Unknown]
  - Arthralgia [Unknown]
  - Abdominal pain [Not Recovered/Not Resolved]
  - Cyst [Unknown]
  - Fatigue [Unknown]

NARRATIVE: CASE EVENT DATE: 20211225
